FAERS Safety Report 9494315 (Version 3)
Quarter: 2013Q4

REPORT INFORMATION
  Report Type: Spontaneous
  Country: US (occurrence: None)
  Receive Date: 20130828
  Receipt Date: 20131008
  Transmission Date: 20140711
  Serious: Yes (Other)
  Sender: FDA-Public Use
  Company Number: AUR-APL-2013-06992

PATIENT
  Age: 51 Year
  Sex: Male
  Weight: 85.71 kg

DRUGS (3)
  1. LOSARTAN (LOSARTAN) [Suspect]
     Indication: HYPERTENSION
  2. VIAGRA (SILDENAFIL CITRATE) [Suspect]
     Indication: ERECTILE DYSFUNCTION
  3. VERAPAMIL (VERAPAMIL) [Suspect]
     Indication: HYPERTENSION
     Dosage: 240 MG (120 MG, 2 IN 1 D)

REACTIONS (4)
  - Diabetes mellitus [None]
  - Erectile dysfunction [None]
  - Dialysis [None]
  - Renal disorder [None]
